FAERS Safety Report 7688898-5 (Version None)
Quarter: 2011Q3

REPORT INFORMATION
  Report Type: 
  Country: None (occurrence: None)
  Receive Date: 20110817
  Receipt Date: 20110803
  Transmission Date: 20111222
  Serious: Yes (Other)
  Sender: FDA-Public Use
  Company Number: PHHY2011BR70565

PATIENT
  Sex: Male

DRUGS (2)
  1. BENICAR [Concomitant]
     Dosage: 320/25MG
  2. EXFORGE [Suspect]
     Dosage: 320/10 MG

REACTIONS (4)
  - BONE LESION [None]
  - JOINT RANGE OF MOTION DECREASED [None]
  - OEDEMA [None]
  - OEDEMA PERIPHERAL [None]
